FAERS Safety Report 4651640-6 (Version None)
Quarter: 2005Q2

REPORT INFORMATION
  Report Type: 
  Country: None (occurrence: None)
  Receive Date: 20050404
  Receipt Date: 20050211
  Transmission Date: 20051028
  Serious: No
  Sender: FDA-Public Use
  Company Number: USA041183138

PATIENT
  Age: 40 Year
  Sex: Female
  Weight: 59 kg

DRUGS (7)
  1. CYMBALTA [Suspect]
     Indication: DEPRESSION
     Dosage: 30 MG/2 DAY
     Dates: start: 20040903, end: 20041201
  2. PROZAC [Suspect]
     Indication: DEPRESSION
  3. KLONOPIN [Concomitant]
  4. PROTOPIC [Concomitant]
  5. VITAMIN E [Concomitant]
  6. VITAMIN B6 [Concomitant]
  7. VITAMIN B-12 [Concomitant]

REACTIONS (18)
  - ANXIETY [None]
  - DANDRUFF [None]
  - DEPRESSED MOOD [None]
  - DEPRESSION [None]
  - DERMATITIS HERPETIFORMIS [None]
  - DRY MOUTH [None]
  - ECZEMA [None]
  - FOLLICULITIS [None]
  - IMPAIRED HEALING [None]
  - INCREASED TENDENCY TO BRUISE [None]
  - JOINT SWELLING [None]
  - NEURODERMATITIS [None]
  - NIGHT SWEATS [None]
  - OESOPHAGITIS [None]
  - PRESSURE OF SPEECH [None]
  - SCAR [None]
  - SKIN BURNING SENSATION [None]
  - XERODERMA [None]
